FAERS Safety Report 9210761 (Version 2)
Quarter: 2013Q4

REPORT INFORMATION
  Report Type: Spontaneous
  Country: US (occurrence: US)
  Receive Date: 20130404
  Receipt Date: 20131213
  Transmission Date: 20140711
  Serious: Yes (Disabling, Other)
  Sender: FDA-Public Use
  Company Number: US-BAYER-2013-040242

PATIENT
  Age: 35 Year
  Sex: Female

DRUGS (6)
  1. YAZ [Suspect]
     Dosage: UNK
     Dates: start: 2003
  2. YASMIN [Suspect]
     Dosage: UNK
     Dates: start: 2003
  3. DEXILANT [Concomitant]
     Dosage: UNK
     Dates: start: 20110913
  4. LEVOTHYROXINE [Concomitant]
     Dosage: UNK
     Dates: start: 20110913
  5. VANCOMYCIN [Concomitant]
  6. HYDROCODONE W/ACETAMINOPHEN [Concomitant]

REACTIONS (6)
  - Gallbladder disorder [None]
  - Cholecystitis chronic [None]
  - Injury [None]
  - Pain [None]
  - Anxiety [None]
  - Deformity [None]
